FAERS Safety Report 8552726-6 (Version None)
Quarter: 2012Q3

REPORT INFORMATION
  Report Type: 
  Country: None (occurrence: None)
  Receive Date: 20120731
  Receipt Date: 20120719
  Transmission Date: 20120928
  Serious: Yes (Hospitalization)
  Sender: FDA-Public Use
  Company Number: PHHY2012JP046803

PATIENT
  Sex: Female

DRUGS (15)
  1. FUROSEMIDE [Concomitant]
     Indication: CARDIAC FAILURE CHRONIC
     Dosage: 40 MG, UNK
  2. NEO-MINOPHAGEN C [Concomitant]
     Route: 042
     Dates: start: 20120501
  3. SITAGLIPTIN PHOSPHATE [Concomitant]
     Indication: TYPE 2 DIABETES MELLITUS
     Dosage: 100 MG, UNK
     Dates: end: 20120511
  4. STEROIDS NOS [Concomitant]
     Indication: PITYRIASIS ROSEA
  5. AMINOVACT [Concomitant]
     Indication: HEPATIC CIRRHOSIS
     Dosage: 22 G, UNK
     Dates: end: 20120501
  6. LAC B [Concomitant]
     Indication: CONSTIPATION
     Dosage: 6 G, UNK
  7. NATEGLINIDE [Suspect]
     Indication: TYPE 2 DIABETES MELLITUS
     Dosage: 90 MG, TID
     Route: 048
     Dates: start: 20110630, end: 20120326
  8. LANSOPRAZOLE [Concomitant]
     Indication: GASTRIC ULCER
     Dosage: 15 MG, UNK
     Dates: start: 20120312, end: 20120501
  9. SENNOSIDE [Concomitant]
     Indication: CONSTIPATION
     Dosage: 12 G, UNK
  10. CETIRIZINE HCL [Concomitant]
     Indication: PRURITUS
     Dosage: 10 MG, UNK
     Dates: start: 20120326
  11. NATEGLINIDE [Suspect]
     Dosage: 90 MG, TID
     Route: 048
     Dates: start: 20120507, end: 20120511
  12. NATEGLINIDE [Suspect]
     Indication: TYPE 2 DIABETES MELLITUS
     Dosage: 90 MG, TID
     Dates: start: 20120326, end: 20120501
  13. PAXIL [Concomitant]
     Indication: DEPRESSION
     Dosage: 10 MG, UNK
     Dates: start: 20120327, end: 20120501
  14. NOVOLIN R [Concomitant]
     Indication: BLOOD GLUCOSE
     Route: 048
  15. MAGMITT KENEI [Concomitant]
     Indication: CONSTIPATION
     Dosage: 1000 MG, UNK
     Dates: start: 20120323

REACTIONS (13)
  - HEPATIC FUNCTION ABNORMAL [None]
  - MUSCULOSKELETAL STIFFNESS [None]
  - RASH GENERALISED [None]
  - DRUG ERUPTION [None]
  - DRUG HYPERSENSITIVITY [None]
  - PRURITUS [None]
  - EOSINOPHILIA [None]
  - THROMBOCYTOPENIA [None]
  - LEUKOPENIA [None]
  - ERYTHEMA [None]
  - LIVER DISORDER [None]
  - C-REACTIVE PROTEIN INCREASED [None]
  - PITYRIASIS ROSEA [None]
